FAERS Safety Report 25316939 (Version 1)
Quarter: 2025Q2

REPORT INFORMATION
  Report Type: Report from Study
  Country: CA (occurrence: CA)
  Receive Date: 20250515
  Receipt Date: 20250515
  Transmission Date: 20250716
  Serious: Yes (Other)
  Sender: ALEXION PHARMACEUTICALS
  Company Number: CA-AstraZeneca-CH-00869072A

PATIENT

DRUGS (1)
  1. CALQUENCE [Suspect]
     Active Substance: ACALABRUTINIB
     Indication: Chronic lymphocytic leukaemia

REACTIONS (9)
  - Intestinal perforation [Unknown]
  - Stoma site discharge [Unknown]
  - Bacterial infection [Unknown]
  - Pruritus [Unknown]
  - Gait disturbance [Unknown]
  - Stoma site discharge [Unknown]
  - Pruritus [Unknown]
  - Bacterial infection [Unknown]
  - Gait disturbance [Unknown]
